FAERS Safety Report 4549596-X (Version None)
Quarter: 2005Q1

REPORT INFORMATION
  Report Type: 
  Country: None (occurrence: None)
  Receive Date: 20050111
  Receipt Date: 20050104
  Transmission Date: 20050727
  Serious: Yes (Hospitalization)
  Sender: FDA-Public Use
  Company Number: US-JNJFOC-20050100855

PATIENT
  Sex: Female

DRUGS (18)
  1. DURAGESIC [Suspect]
     Route: 062
  2. PLAVIX [Concomitant]
     Route: 049
  3. DETROL LA [Concomitant]
     Route: 049
  4. TRAZODONE HCL [Concomitant]
     Route: 049
  5. METFORMIN HCL [Concomitant]
     Route: 049
  6. GLIPIZIDE [Concomitant]
     Route: 049
  7. LIPITOR [Concomitant]
     Route: 049
  8. POTASSIUM CHLORIDE [Concomitant]
     Route: 049
  9. LASIX [Concomitant]
     Route: 049
  10. ISOSORBIDE [Concomitant]
     Route: 049
  11. NEURONTIN [Concomitant]
     Route: 049
  12. SOMA [Concomitant]
     Route: 049
  13. HYDROXYZ-PAM [Concomitant]
     Route: 049
  14. LORTAB [Concomitant]
     Route: 049
  15. LORTAB [Concomitant]
     Dosage: 10/500, ONE FOUR TIMES A DAY AS NEEDED
     Route: 049
  16. PRILOSEC [Concomitant]
     Route: 049
  17. IBUPROFEN [Concomitant]
     Route: 049
  18. ASPIRIN [Concomitant]
     Route: 049

REACTIONS (2)
  - FEMORAL ARTERY ANEURYSM [None]
  - POST PROCEDURAL HAEMORRHAGE [None]
